FAERS Safety Report 8185346-6 (Version None)
Quarter: 2012Q1

REPORT INFORMATION
  Report Type: 
  Country: None (occurrence: None)
  Receive Date: 20120305
  Receipt Date: 20120228
  Transmission Date: 20120608
  Serious: Yes (Life-Threatening, Hospitalization, Other)
  Sender: FDA-Public Use
  Company Number: PHHY2012FR017349

PATIENT
  Age: 47 Year
  Sex: Female

DRUGS (1)
  1. TEGRETOL [Suspect]
     Indication: MYOCLONUS
     Dosage: 100 MG, DAILY AT NIGHT
     Dates: end: 20111204

REACTIONS (23)
  - DRUG RASH WITH EOSINOPHILIA AND SYSTEMIC SYMPTOMS [None]
  - TRAUMATIC LUNG INJURY [None]
  - GAMMA-GLUTAMYLTRANSFERASE INCREASED [None]
  - HYPERTHERMIA [None]
  - SKIN EXFOLIATION [None]
  - ALANINE AMINOTRANSFERASE INCREASED [None]
  - C-REACTIVE PROTEIN INCREASED [None]
  - HUMAN HERPES VIRUS 6 SEROLOGY POSITIVE [None]
  - RASH [None]
  - EOSINOPHILIA [None]
  - BRONCHITIS [None]
  - STREPTOCOCCUS TEST POSITIVE [None]
  - ORAL DISORDER [None]
  - LEUKOCYTOSIS [None]
  - PYREXIA [None]
  - RASH VESICULAR [None]
  - LYMPHADENOPATHY [None]
  - ASPARTATE AMINOTRANSFERASE INCREASED [None]
  - EPSTEIN-BARR VIRUS TEST POSITIVE [None]
  - DERMATITIS EXFOLIATIVE [None]
  - PURPURA [None]
  - BLOOD ALKALINE PHOSPHATASE INCREASED [None]
  - CYTOMEGALOVIRUS TEST POSITIVE [None]
